FAERS Safety Report 8623272-6 (Version None)
Quarter: 2012Q3

REPORT INFORMATION
  Report Type: 
  Country: None (occurrence: None)
  Receive Date: 20120827
  Receipt Date: 20120816
  Transmission Date: 20120928
  Serious: Yes (Other)
  Sender: FDA-Public Use
  Company Number: CN-ASTRAZENECA-2010SE36636

PATIENT
  Age: 50 Year
  Sex: Male
  Weight: 55.8 kg

DRUGS (2)
  1. SEROQUEL [Suspect]
     Indication: DELIRIUM
     Route: 048
     Dates: start: 20100801
  2. SEROQUEL [Suspect]
     Route: 048
     Dates: end: 20100808

REACTIONS (2)
  - CEREBRAL INFARCTION [None]
  - THROMBOSIS [None]
